FAERS Safety Report 4642787-9 (Version None)
Quarter: 2005Q2

REPORT INFORMATION
  Report Type: 
  Country: None (occurrence: None)
  Receive Date: 20050421
  Receipt Date: 20050411
  Transmission Date: 20051028
  Serious: Yes (Other)
  Sender: FDA-Public Use
  Company Number: CHPA2003US02269

PATIENT
  Age: 46 Year
  Sex: Female
  Weight: 67.1 kg

DRUGS (14)
  1. EX-LAX LAXATIVE UNKNOWN FORMULA (NCH)(UNKNOWN) UNKNOWN [Suspect]
     Indication: WEIGHT CONTROL
     Dosage: ORAL
     Route: 048
     Dates: end: 19830101
  2. DULCOLAX [Suspect]
     Dosage: ORAL
     Route: 048
     Dates: end: 19830101
  3. CORRECTOL [Suspect]
     Dosage: ORAL
     Route: 048
     Dates: end: 19830101
  4. TYLENOL PM (DIPHENHYDRAMINE, PARACETAMOL) [Concomitant]
  5. CALCIUM (CALCIUM) [Concomitant]
  6. CENESTIN [Concomitant]
  7. VIVELLE [Concomitant]
  8. BENTYL [Concomitant]
  9. ZOCOR [Concomitant]
  10. ZANTAC (RANITIDINE HDYROCHLORIDE) [Concomitant]
  11. ROLAIDS (DIHYDROXYALUMINIUM SODIUM CARBONATE) [Concomitant]
  12. PHAZYME (DIASTASE, PANCREATIN, PEPSIN, SIMETICONE) [Concomitant]
  13. FLAGYL [Concomitant]
  14. ROBINUL (GLUCOPYRRONIUM BROMIDE) [Concomitant]

REACTIONS (15)
  - BACK PAIN [None]
  - BACTERIAL INFECTION [None]
  - CHANGE OF BOWEL HABIT [None]
  - CHEST PAIN [None]
  - CONTUSION [None]
  - DRUG DEPENDENCE [None]
  - DYSPEPSIA [None]
  - ECONOMIC PROBLEM [None]
  - EMOTIONAL DISORDER [None]
  - HEADACHE [None]
  - HYPERLIPIDAEMIA [None]
  - INCREASED TENDENCY TO BRUISE [None]
  - INJURY [None]
  - IRRITABLE BOWEL SYNDROME [None]
  - PHYSICAL DISABILITY [None]
